FAERS Safety Report 16900543 (Version 1)
Quarter: 2019Q4

REPORT INFORMATION
  Report Type: Spontaneous
  Country: IT (occurrence: IT)
  Receive Date: 20191009
  Receipt Date: 20191009
  Transmission Date: 20200122
  Serious: Yes (Hospitalization, Other)
  Sender: FDA-Public Use
  Company Number: IT-SA-2019SA275307

PATIENT
  Age: 86 Year
  Sex: Male

DRUGS (4)
  1. NORVASC [Concomitant]
     Active Substance: AMLODIPINE BESYLATE
     Dosage: UNK, UNK
  2. COAPROVEL [Concomitant]
     Active Substance: HYDROCHLOROTHIAZIDE\IRBESARTAN
     Dosage: UNK, UNK
  3. SELOKEN [METOPROLOL SUCCINATE] [Concomitant]
     Dosage: UNK, UNK
  4. PLAVIX [Suspect]
     Active Substance: CLOPIDOGREL BISULFATE
     Indication: ANTIPLATELET THERAPY
     Dosage: 75 MG, QD
     Route: 048
     Dates: start: 20140101, end: 20190924

REACTIONS (2)
  - Subdural haemorrhage [Recovering/Resolving]
  - Loss of consciousness [Recovering/Resolving]

NARRATIVE: CASE EVENT DATE: 20190924
